FAERS Safety Report 9134961 (Version 2)
Quarter: 2013Q4

REPORT INFORMATION
  Report Type: Report from Study
  Country: US (occurrence: US)
  Receive Date: 20130304
  Receipt Date: 20131029
  Transmission Date: 20140711
  Serious: Yes (Hospitalization)
  Sender: FDA-Public Use
  Company Number: US-ELI_LILLY_AND_COMPANY-US201205006905

PATIENT
  Age: 68 Year
  Sex: Female

DRUGS (6)
  1. TERIPARATIDE [Suspect]
     Indication: OSTEOPOROSIS
     Dosage: 20 UG, QD
     Route: 065
     Dates: start: 201203
  2. TERIPARATIDE [Suspect]
     Dosage: 20 UG, QD
     Route: 065
  3. TERIPARATIDE [Suspect]
     Dosage: 20 UG, QD
     Route: 065
  4. CALCIUM [Concomitant]
  5. LOVASTATIN [Concomitant]
     Indication: BLOOD CHOLESTEROL
  6. VOLTAREN                                /SCH/ [Concomitant]
     Indication: ARTHRITIS

REACTIONS (9)
  - Back pain [Unknown]
  - Venous injury [Unknown]
  - Contusion [Not Recovered/Not Resolved]
  - Dizziness [Recovered/Resolved]
  - Injection site bruising [Not Recovered/Not Resolved]
  - Injection site pain [Unknown]
  - Drug dose omission [Unknown]
  - Osteoarthritis [Unknown]
  - Injection site haemorrhage [Recovered/Resolved]
